FAERS Safety Report 4801651-2 (Version None)
Quarter: 2005Q3

REPORT INFORMATION
  Report Type: 
  Country: None (occurrence: None)
  Receive Date: 20050929
  Receipt Date: 20050722
  Transmission Date: 20060218
  Serious: Yes (Death)
  Sender: FDA-Public Use
  Company Number: 05P-163-0306365-00

PATIENT
  Age: 71 Year
  Sex: Female
  Weight: 105 kg

DRUGS (10)
  1. HUMIRA [Suspect]
     Indication: RHEUMATOID ARTHRITIS
     Dosage: 40 MG, 1 IN 2 WK, SUBCUTANEOUS
     Route: 058
     Dates: start: 20040528
  2. METOPROLOL [Concomitant]
  3. PROPACET 100 [Concomitant]
  4. LISINOPRIL [Concomitant]
  5. ATORVASTATIN CALCIUM [Concomitant]
  6. TEMAZEPAM [Concomitant]
  7. GLIBENCLAMIDE [Concomitant]
  8. MULTI-VITAMINS [Concomitant]
  9. LATANOPROST [Concomitant]
  10. PREDNISONE [Concomitant]

REACTIONS (1)
  - DEATH [None]
